FAERS Safety Report 6664228-2 (Version None)
Quarter: 2010Q2

REPORT INFORMATION
  Report Type: 
  Country: None (occurrence: None)
  Receive Date: 20100401
  Receipt Date: 20100322
  Transmission Date: 20101027
  Serious: Yes (Hospitalization)
  Sender: FDA-Public Use
  Company Number: PHHY2010DE17806

PATIENT

DRUGS (1)
  1. AFINITOR [Suspect]
     Dosage: 10 MG/DAY

REACTIONS (1)
  - COLITIS [None]
